FAERS Safety Report 16216912 (Version 2)
Quarter: 2019Q2

REPORT INFORMATION
  Report Type: Report from Study
  Country: IT (occurrence: IT)
  Receive Date: 20190419
  Receipt Date: 20190529
  Transmission Date: 20190711
  Serious: Yes (Hospitalization)
  Sender: FDA-Public Use
  Company Number: IT-PFIZER INC-2019165723

PATIENT
  Age: 9 Year
  Sex: Male
  Weight: 37 kg

DRUGS (16)
  1. ZYLORIC [Concomitant]
     Active Substance: ALLOPURINOL
     Dosage: 300 MG, 1X/DAY
     Route: 048
     Dates: start: 20180720, end: 20180728
  2. URBASON [METHYLPREDNISOLONE] [Concomitant]
     Active Substance: METHYLPREDNISOLONE
     Indication: PREMEDICATION
     Dosage: 205 MG/KG, 1X/DAY
     Route: 042
     Dates: start: 20180721
  3. DAUNOBLASTINA [Suspect]
     Active Substance: DAUNORUBICIN
     Indication: ACUTE LYMPHOCYTIC LEUKAEMIA
     Dosage: 35.4 MG, CYCLIC
     Route: 042
     Dates: start: 20180727
  4. URBASON [METHYLPREDNISOLONE] [Concomitant]
     Active Substance: METHYLPREDNISOLONE
     Dosage: 10 MG, CYCLIC
     Route: 037
     Dates: start: 20180723, end: 20181015
  5. METHOTREXATE SODIUM. [Suspect]
     Active Substance: METHOTREXATE SODIUM
     Indication: ACUTE LYMPHOCYTIC LEUKAEMIA
     Dosage: 12 MG, CYCLIC
     Route: 037
     Dates: start: 20180723
  6. PAXABEL [Concomitant]
     Dosage: 1 DF, 1X/DAY
     Route: 048
     Dates: start: 20180803, end: 20180810
  7. MYCOSTATIN [Concomitant]
     Active Substance: NYSTATIN
     Dosage: 15 ML, 1X/DAY
     Route: 048
     Dates: start: 20180720
  8. BACTRIM [Concomitant]
     Active Substance: SULFAMETHOXAZOLE\TRIMETHOPRIM
     Dosage: 14 ML, CYCLIC
     Route: 048
     Dates: start: 20180720
  9. PEGASPARGASE [Suspect]
     Active Substance: PEGASPARGASE
     Indication: ACUTE LYMPHOCYTIC LEUKAEMIA
     Dosage: 2950 KIU, CYCLIC
     Route: 042
     Dates: start: 20180802
  10. ZOFRAN [Concomitant]
     Active Substance: ONDANSETRON HYDROCHLORIDE
     Dosage: 6 MG, 1X/DAY
     Route: 042
     Dates: start: 20180723, end: 20180813
  11. ENAPREN [Concomitant]
     Active Substance: ENALAPRIL MALEATE
     Indication: HYPERTENSION
     Dosage: 5 MG, 1X/DAY
     Route: 048
     Dates: start: 20180803
  12. ANTITHROMBIN III HUMAN [Concomitant]
     Active Substance: ANTITHROMBIN III HUMAN
     Dosage: 750 IU, 1X/DAY
     Route: 042
     Dates: start: 20180806
  13. DELTACORTENE [Concomitant]
     Active Substance: PREDNISONE
     Dosage: 70 MG, 1X/DAY
     Route: 048
     Dates: start: 20180727
  14. VINCRISTINE SULFATE. [Suspect]
     Active Substance: VINCRISTINE SULFATE
     Indication: ACUTE LYMPHOCYTIC LEUKAEMIA
     Dosage: 1.77 MG, CYCLIC
     Route: 042
     Dates: start: 20180727
  15. ANTRA [OMEPRAZOLE] [Concomitant]
     Active Substance: OMEPRAZOLE
     Dosage: 20 MG, 1X/DAY
     Route: 042
     Dates: start: 20180721
  16. LASIX [Concomitant]
     Active Substance: FUROSEMIDE
     Dosage: 12.5 MG, 1X/DAY
     Route: 048
     Dates: start: 20180803

REACTIONS (4)
  - Sinus tachycardia [Recovering/Resolving]
  - Electrocardiogram repolarisation abnormality [Recovering/Resolving]
  - Ventricular arrhythmia [Recovering/Resolving]
  - Coating in mouth [Recovering/Resolving]

NARRATIVE: CASE EVENT DATE: 20180808
